FAERS Safety Report 22355438 (Version 1)
Quarter: 2023Q2

REPORT INFORMATION
  Report Type: Spontaneous
  Country: FR (occurrence: FR)
  Receive Date: 20230523
  Receipt Date: 20230523
  Transmission Date: 20230722
  Serious: Yes (Hospitalization)
  Sender: FDA-Public Use
  Company Number: None

PATIENT
  Age: 66 Year
  Sex: Female
  Weight: 80 kg

DRUGS (4)
  1. METHOTREXATE [Suspect]
     Active Substance: METHOTREXATE
     Indication: Metastases to meninges
     Dosage: 15 MILLIGRAM, Q3.5D (TWO TIMES A WEEK)
     Route: 037
     Dates: start: 20220727, end: 20220822
  2. METHOTREXATE [Suspect]
     Active Substance: METHOTREXATE
     Dosage: 15 MILLIGRAM, QD (EVERY OTHER WEEK)
     Route: 037
     Dates: start: 20220823, end: 20221201
  3. METHOTREXATE [Suspect]
     Active Substance: METHOTREXATE
     Dosage: 15 MILLIGRAM, QD (1 WEEK OUT OF 3)
     Route: 037
     Dates: start: 20221201, end: 20230223
  4. DEPO-MEDROL [Concomitant]
     Active Substance: METHYLPREDNISOLONE ACETATE
     Indication: Metastases to meninges
     Dosage: 40 MILLIGRAM
     Route: 037
     Dates: start: 20220727, end: 20230223

REACTIONS (1)
  - Toxic leukoencephalopathy [Recovered/Resolved]

NARRATIVE: CASE EVENT DATE: 20221201
